FAERS Safety Report 11795516 (Version 1)
Quarter: 2015Q4

REPORT INFORMATION
  Report Type: Spontaneous
  Country: JP (occurrence: JP)
  Receive Date: 20151202
  Receipt Date: 20151202
  Transmission Date: 20160305
  Serious: Yes (Hospitalization, Other)
  Sender: FDA-Public Use
  Company Number: PHJP2015JP020933

PATIENT
  Age: 89 Year
  Sex: Female
  Weight: 30 kg

DRUGS (10)
  1. UBIDECARENONE [Concomitant]
     Active Substance: UBIDECARENONE
     Indication: PRODUCT USED FOR UNKNOWN INDICATION
     Dosage: 10 MG, BID
     Route: 065
  2. CILOSTAZOL. [Concomitant]
     Active Substance: CILOSTAZOL
     Indication: PRODUCT USED FOR UNKNOWN INDICATION
     Dosage: 10 MG, QD
     Route: 065
  3. AMANTADINE [Suspect]
     Active Substance: AMANTADINE
     Dosage: 100 MG, QD
     Route: 048
  4. TRIHEXYPHENIDYL [Concomitant]
     Active Substance: TRIHEXYPHENIDYL
     Indication: PRODUCT USED FOR UNKNOWN INDICATION
     Dosage: 2 MG, TID
     Route: 048
  5. FOLIAMIN [Concomitant]
     Active Substance: FOLIC ACID
     Indication: PRODUCT USED FOR UNKNOWN INDICATION
     Dosage: 50 MG, UNK
     Route: 065
  6. CEFMETAZOLE [Concomitant]
     Active Substance: CEFMETAZOLE
     Indication: PRODUCT USED FOR UNKNOWN INDICATION
     Dosage: 3 G, UNK
     Route: 065
  7. AMANTADINE [Suspect]
     Active Substance: AMANTADINE
     Indication: PARKINSON^S DISEASE
     Dosage: 50 MG, TID
     Route: 048
  8. AZILSARTAN [Concomitant]
     Active Substance: AZILSARTAN KAMEDOXOMIL
     Indication: PRODUCT USED FOR UNKNOWN INDICATION
     Dosage: 20 MG, QD
     Route: 065
  9. MECOBALAMIN [Concomitant]
     Active Substance: METHYLCOBALAMIN
     Indication: PRODUCT USED FOR UNKNOWN INDICATION
     Dosage: 500 UG, TID
     Route: 065
  10. THYRADIN [Concomitant]
     Active Substance: LEVOTHYROXINE
     Indication: PRODUCT USED FOR UNKNOWN INDICATION
     Dosage: 25 UG, QD
     Route: 065

REACTIONS (15)
  - Urinary tract infection [Unknown]
  - Dysphagia [Unknown]
  - Dry mouth [Unknown]
  - Dyskinesia [Recovering/Resolving]
  - Cardiac murmur [Unknown]
  - Gastrointestinal sounds abnormal [Unknown]
  - Tongue movement disturbance [Recovering/Resolving]
  - Dry skin [Unknown]
  - Computerised tomogram abnormal [Unknown]
  - Crepitations [Unknown]
  - Chorea [Unknown]
  - Clubbing [Unknown]
  - Blood calcium increased [Unknown]
  - Single photon emission computerised tomogram abnormal [Unknown]
  - Thyroid disorder [Unknown]
